FAERS Safety Report 7988537-X (Version None)
Quarter: 2011Q4

REPORT INFORMATION
  Report Type: 
  Country: None (occurrence: None)
  Receive Date: 20111218
  Receipt Date: 20111207
  Transmission Date: 20120403
  Serious: Yes (Hospitalization, Other)
  Sender: FDA-Public Use
  Company Number: US-ASTRAZENECA-2011SE40841

PATIENT
  Age: 49 Year
  Sex: Female

DRUGS (5)
  1. NEXIUM [Suspect]
     Route: 048
  2. ZANTAC [Concomitant]
  3. HGH [Concomitant]
  4. SYNTHROID [Concomitant]
  5. TRICOR [Concomitant]

REACTIONS (2)
  - CHOLELITHIASIS [None]
  - DYSPEPSIA [None]
